FAERS Safety Report 7984980-3 (Version None)
Quarter: 2011Q4

REPORT INFORMATION
  Report Type: 
  Country: None (occurrence: None)
  Receive Date: 20111216
  Receipt Date: 20111213
  Transmission Date: 20120403
  Serious: No
  Sender: FDA-Public Use
  Company Number: US-ALLERGAN-1114137US

PATIENT
  Sex: Female

DRUGS (2)
  1. LATISSE [Suspect]
     Indication: PRODUCT USED FOR UNKNOWN INDICATION
     Dosage: UNK
     Dates: start: 20111012
  2. BACTRIM [Concomitant]
     Indication: CYST
     Dosage: UNK
     Route: 048
     Dates: start: 20111012, end: 20111021

REACTIONS (3)
  - EYE PAIN [None]
  - VISION BLURRED [None]
  - OCULAR HYPERAEMIA [None]
